FAERS Safety Report 5505647-7 (Version None)
Quarter: 2007Q4

REPORT INFORMATION
  Report Type: 
  Country: None (occurrence: None)
  Receive Date: 20071102
  Receipt Date: 20071023
  Transmission Date: 20080405
  Serious: Yes (Other)
  Sender: FDA-Public Use
  Company Number: US-PFIZER INC-2007089496

PATIENT
  Sex: Female
  Weight: 75 kg

DRUGS (5)
  1. DETROL LA [Suspect]
     Indication: HYPERTONIC BLADDER
     Route: 048
     Dates: start: 20070815, end: 20071016
  2. PRILOSEC [Concomitant]
     Route: 048
  3. BONIVA [Concomitant]
     Route: 048
  4. VYTORIN [Concomitant]
     Route: 048
  5. ASPIRIN [Concomitant]
     Route: 048

REACTIONS (3)
  - DRY MOUTH [None]
  - TOOTH ABSCESS [None]
  - TOOTHACHE [None]
